FAERS Safety Report 19292338 (Version 3)
Quarter: 2021Q2

REPORT INFORMATION
  Report Type: Spontaneous
  Country: TH (occurrence: TH)
  Receive Date: 20210524
  Receipt Date: 20210618
  Transmission Date: 20210717
  Serious: Yes (Hospitalization, Other)
  Sender: FDA-Public Use
  Company Number: TH-BRISTOL-MYERS SQUIBB COMPANY-BMS-2021-049798

PATIENT
  Age: 55 Year
  Sex: Female

DRUGS (2)
  1. OPDIVO [Suspect]
     Active Substance: NIVOLUMAB
     Indication: ADENOCARCINOMA GASTRIC
     Dosage: 140 MILLIGRAM, Q2WK
     Route: 042
     Dates: start: 20210421
  2. OPDIVO [Suspect]
     Active Substance: NIVOLUMAB
     Dosage: 140 MILLIGRAM, Q2WK
     Route: 042
     Dates: start: 20210604

REACTIONS (1)
  - Gastrointestinal disorder [Unknown]
